FAERS Safety Report 9351580 (Version 1)
Quarter: 2013Q2

REPORT INFORMATION
  Report Type: Report from Study
  Country: AR (occurrence: AR)
  Receive Date: 20130617
  Receipt Date: 20130617
  Transmission Date: 20140414
  Serious: Yes (Other)
  Sender: FDA-Public Use
  Company Number: PHHY2013AR061533

PATIENT
  Sex: Female

DRUGS (1)
  1. DIOVAN D [Suspect]
     Indication: BLOOD PRESSURE ABNORMAL
     Dosage: 1 DF (160/25MG), DAILY
     Route: 048

REACTIONS (2)
  - Arthritis [Not Recovered/Not Resolved]
  - Blood creatinine increased [Recovering/Resolving]
